FAERS Safety Report 8567751-9 (Version None)
Quarter: 2012Q3

REPORT INFORMATION
  Report Type: 
  Country: None (occurrence: None)
  Receive Date: 20120803
  Receipt Date: 20120730
  Transmission Date: 20120928
  Serious: Yes (Other)
  Sender: FDA-Public Use
  Company Number: US-MYLANLABS-2012S1015735

PATIENT
  Age: 51 Year
  Sex: Male

DRUGS (2)
  1. FENTANYL [Suspect]
     Indication: BACK PAIN
     Dosage: CHANGED Q72H
     Route: 062
     Dates: start: 20120720
  2. FENTANYL [Suspect]
     Indication: ARTHRALGIA
     Dosage: CHANGED Q72H
     Route: 062
     Dates: start: 20120720

REACTIONS (8)
  - HYPERTENSION [None]
  - MUSCLE SPASMS [None]
  - BACK PAIN [None]
  - DIARRHOEA [None]
  - ARTHRALGIA [None]
  - HEADACHE [None]
  - DRUG INEFFECTIVE [None]
  - DECREASED APPETITE [None]
